FAERS Safety Report 13957424 (Version 1)
Quarter: 2017Q3

REPORT INFORMATION
  Report Type: Not Available
  Country: None (occurrence: US)
  Receive Date: 20170911
  Receipt Date: 20170911
  Transmission Date: 20171128
  Serious: No
  Sender: FDA-Public Use
  Company Number: US-AKORN-66718

PATIENT
  Sex: Female

DRUGS (1)
  1. DRONABINOL CAPSULE, USP CIII [Suspect]
     Active Substance: DRONABINOL

REACTIONS (4)
  - Malaise [Recovered/Resolved]
  - Throat irritation [Recovered/Resolved]
  - Nausea [Recovered/Resolved]
  - Dysgeusia [Recovered/Resolved]
